FAERS Safety Report 4503626-X (Version None)
Quarter: 2004Q4

REPORT INFORMATION
  Report Type: 
  Country: None (occurrence: None)
  Receive Date: 20041115
  Receipt Date: 20041108
  Transmission Date: 20050328
  Serious: Yes (Death)
  Sender: FDA-Public Use
  Company Number: F01200403520

PATIENT
  Age: 77 Year
  Sex: Male

DRUGS (14)
  1. OXALIPLATIN [Suspect]
     Indication: COLON CANCER METASTATIC
     Dosage: 250 MG Q3W INTRAVENOUS NOS
     Route: 042
     Dates: start: 20041013, end: 20041013
  2. XELODA [Suspect]
     Dosage: DROM D1 TO D14 Q3W OR FROM D2 TO D15, ORAL
     Route: 048
  3. TROMALYT (ACETYLSALICYLIC ACID) [Concomitant]
  4. ALDACTACINE (ALTIZIDE, SPIRONOLACTONE) [Concomitant]
  5. MASDIL (DILTIAZEM HCL) [Concomitant]
  6. VISCOFRESH COLIRIO (CARMELLOSE SODIUM) [Concomitant]
  7. BENESTAN RETARD (ALFUZOSIN HCL) [Concomitant]
  8. HEMOVAS (PENTOXIFYLLINE) [Concomitant]
  9. PULMICORT [Concomitant]
  10. SEREVENT [Concomitant]
  11. TRANXILIOUM (CLORAZEPATE DIPOTASSIUM) [Concomitant]
  12. NUCLOSINA (OMEPRAZOLE) [Concomitant]
  13. VOLTAREN EYE DROP (DICLOFENAC SODIUM) [Concomitant]
  14. PRIMPERAN TAB [Concomitant]

REACTIONS (17)
  - ABDOMINAL DISTENSION [None]
  - ABDOMINAL PAIN [None]
  - ASTHENIA [None]
  - BLOOD POTASSIUM DECREASED [None]
  - BOWEL SOUNDS ABNORMAL [None]
  - BREATH SOUNDS DECREASED [None]
  - DEHYDRATION [None]
  - DIARRHOEA [None]
  - DYSPNOEA AT REST [None]
  - GENERALISED OEDEMA [None]
  - HYPONATRAEMIA [None]
  - INADEQUATE ANALGESIA [None]
  - NEUTROPENIA [None]
  - OEDEMA PERIPHERAL [None]
  - ORTHOPNOEA [None]
  - RENAL FAILURE [None]
  - VOMITING [None]
